FAERS Safety Report 25667350 (Version 2)
Quarter: 2025Q3

REPORT INFORMATION
  Report Type: Spontaneous
  Country: US (occurrence: US)
  Receive Date: 20250811
  Receipt Date: 20250812
  Transmission Date: 20251020
  Serious: No
  Sender: JOHNSON AND JOHNSON
  Company Number: US-JNJFOC-20250806362

PATIENT
  Age: 47 Year
  Sex: Male

DRUGS (1)
  1. INVEGA [Suspect]
     Active Substance: PALIPERIDONE
     Indication: Bipolar II disorder
     Route: 048

REACTIONS (3)
  - Depression [Unknown]
  - Crying [Unknown]
  - Drug ineffective [Unknown]
